FAERS Safety Report 14448830 (Version 3)
Quarter: 2018Q2

REPORT INFORMATION
  Report Type: Spontaneous
  Country: US (occurrence: US)
  Receive Date: 20180126
  Receipt Date: 20180405
  Transmission Date: 20180711
  Serious: No
  Sender: FDA-Public Use
  Company Number: US-PFIZER INC-2018034226

PATIENT
  Age: 74 Year
  Sex: Female
  Weight: 80.4 kg

DRUGS (2)
  1. BUPIVACAINE HCL [Suspect]
     Active Substance: BUPIVACAINE HYDROCHLORIDE
     Indication: HIP SURGERY
     Dosage: 0.75%, 2ML VIAL AT 1 - 2 ML, 1X/DAY
     Route: 008
     Dates: start: 20170510, end: 20170510
  2. BUPIVACAINE HCL [Suspect]
     Active Substance: BUPIVACAINE HYDROCHLORIDE
     Dosage: UNK
     Route: 008
     Dates: start: 20170510, end: 20170510

REACTIONS (1)
  - Drug ineffective [Recovered/Resolved]

NARRATIVE: CASE EVENT DATE: 20170510
